FAERS Safety Report 16745971 (Version 2)
Quarter: 2019Q4

REPORT INFORMATION
  Report Type: Spontaneous
  Country: PR (occurrence: PR)
  Receive Date: 20190827
  Receipt Date: 20191028
  Transmission Date: 20200122
  Serious: No
  Sender: FDA-Public Use
  Company Number: PR-ABBVIE-19K-131-2866163-00

PATIENT
  Age: 63 Year
  Sex: Male

DRUGS (1)
  1. MAVIRET [Suspect]
     Active Substance: GLECAPREVIR\PIBRENTASVIR
     Indication: PRODUCT USED FOR UNKNOWN INDICATION
     Route: 048
     Dates: start: 201906, end: 2019

REACTIONS (5)
  - Urticaria [Recovered/Resolved]
  - Stomatitis [Unknown]
  - Dyspnoea [Unknown]
  - Glossitis [Unknown]
  - Cheilitis [Unknown]

NARRATIVE: CASE EVENT DATE: 201907
